FAERS Safety Report 7178374-0 (Version None)
Quarter: 2010Q4

REPORT INFORMATION
  Report Type: 
  Country: None (occurrence: None)
  Receive Date: 20101220
  Receipt Date: 20101208
  Transmission Date: 20110411
  Serious: Yes (Other)
  Sender: FDA-Public Use
  Company Number: US-ELI_LILLY_AND_COMPANY-US201012002192

PATIENT
  Age: 21 Year
  Sex: Male

DRUGS (1)
  1. PROZAC [Suspect]
     Indication: PERSONALITY DISORDER

REACTIONS (6)
  - ANGER [None]
  - EMOTIONAL DISORDER [None]
  - HOMICIDE [None]
  - MEDICATION ERROR [None]
  - OFF LABEL USE [None]
  - PHYSICAL ASSAULT [None]
